FAERS Safety Report 8701680 (Version 5)
Quarter: 2013Q3

REPORT INFORMATION
  Report Type: Report from Study
  Country: TH (occurrence: TH)
  Receive Date: 20120803
  Receipt Date: 20130912
  Transmission Date: 20140515
  Serious: Yes (Hospitalization)
  Sender: FDA-Public Use
  Company Number: TH-BRISTOL-MYERS SQUIBB COMPANY-16828758

PATIENT
  Age: 53 Year
  Sex: Female

DRUGS (1)
  1. ARIPIPRAZOLE IM DEPOT [Suspect]
     Indication: SCHIZOPHRENIA
     Dosage: LAST DOSE PRIOR TO SAE:19JUL12.ALSO TOOK ORAL ARIPIPRAZOLE
     Route: 030
     Dates: start: 20120315, end: 20120719

REACTIONS (1)
  - Schizophrenia [Recovered/Resolved]
